FAERS Safety Report 16641621 (Version 1)
Quarter: 2019Q3

REPORT INFORMATION
  Report Type: Spontaneous
  Country: CA (occurrence: CA)
  Receive Date: 20190729
  Receipt Date: 20190729
  Transmission Date: 20191004
  Serious: Yes (Other)
  Sender: FDA-Public Use
  Company Number: CA-TEVA-2019-CA-1083492

PATIENT
  Sex: Female

DRUGS (3)
  1. FENTANYL TRANSDERMAL SYSTEM [Suspect]
     Active Substance: FENTANYL
     Indication: PAIN
     Route: 065
  2. MORPHINE SULFATE INJECTION 1MG/ML [Suspect]
     Active Substance: MORPHINE SULFATE
     Indication: PAIN
     Route: 065
  3. APO-OXYCODONE CR [Suspect]
     Active Substance: OXYCODONE HYDROCHLORIDE
     Indication: PAIN
     Route: 065

REACTIONS (2)
  - Drug use disorder [Unknown]
  - Drug ineffective [Unknown]
